FAERS Safety Report 10951961 (Version 5)
Quarter: 2015Q2

REPORT INFORMATION
  Report Type: Spontaneous
  Country: US (occurrence: US)
  Receive Date: 20150325
  Receipt Date: 20150528
  Transmission Date: 20150821
  Serious: Yes (Hospitalization, Other)
  Sender: FDA-Public Use
  Company Number: US-ASTRAZENECA-2015SE27072

PATIENT
  Age: 24870 Day
  Sex: Female
  Weight: 72.6 kg

DRUGS (20)
  1. VITAMIN D3 [Concomitant]
     Active Substance: CHOLECALCIFEROL
     Indication: OSTEOPENIA
     Route: 048
     Dates: start: 2013
  2. LOVENOX [Concomitant]
     Active Substance: ENOXAPARIN SODIUM
  3. LEVAQUIN [Concomitant]
     Active Substance: LEVOFLOXACIN
  4. METOPROLOL TARTRATE. [Concomitant]
     Active Substance: METOPROLOL TARTRATE
  5. BENEFIBER [Concomitant]
     Active Substance: STARCH, WHEAT
     Indication: CONSTIPATION
     Dosage: 1 TABLESPOON DAILY
     Route: 048
  6. CENTRUM SILVER [Concomitant]
     Active Substance: VITAMINS
     Indication: ILL-DEFINED DISORDER
     Route: 048
  7. LIPITOR [Concomitant]
     Active Substance: ATORVASTATIN CALCIUM
  8. OMEPRAZOLE. [Suspect]
     Active Substance: OMEPRAZOLE
     Indication: GASTROOESOPHAGEAL REFLUX DISEASE
     Route: 048
  9. ATORVASTATIN [Concomitant]
     Active Substance: ATORVASTATIN
     Indication: BLOOD CHOLESTEROL INCREASED
     Route: 048
  10. SYMBICORT [Suspect]
     Active Substance: BUDESONIDE\FORMOTEROL FUMARATE DIHYDRATE
     Indication: CHRONIC OBSTRUCTIVE PULMONARY DISEASE
     Dosage: 160/4.5 UG TWO PUFFS; TWO TIMES A DAY
     Route: 055
  11. SOLU-MEDROL [Concomitant]
     Active Substance: METHYLPREDNISOLONE SODIUM SUCCINATE
  12. CRESTOR [Suspect]
     Active Substance: ROSUVASTATIN CALCIUM
     Route: 048
  13. SURFAK [Concomitant]
     Indication: FAECES HARD
     Route: 048
  14. ALBUTEROL. [Concomitant]
     Active Substance: ALBUTEROL
  15. IPRATROPIUM [Concomitant]
     Active Substance: IPRATROPIUM
     Dosage: EVERY 4 HOURS
  16. OMEPRAZOLE. [Suspect]
     Active Substance: OMEPRAZOLE
     Indication: GASTROOESOPHAGEAL REFLUX DISEASE
     Route: 048
  17. SPIRIVA [Concomitant]
     Active Substance: TIOTROPIUM BROMIDE MONOHYDRATE
     Indication: CHRONIC OBSTRUCTIVE PULMONARY DISEASE
     Route: 055
  18. ASPIRIN. [Concomitant]
     Active Substance: ASPIRIN
     Indication: CORONARY ARTERIAL STENT INSERTION
     Route: 048
     Dates: start: 2007
  19. PROTONIX [Concomitant]
     Active Substance: PANTOPRAZOLE SODIUM
  20. STOOL SOFTENER [Concomitant]
     Active Substance: DOCUSATE CALCIUM

REACTIONS (20)
  - Respiratory failure [Unknown]
  - Nocturia [Unknown]
  - Cough [Unknown]
  - Dyspnoea exertional [Unknown]
  - Pulse abnormal [Unknown]
  - Wheezing [Recovered/Resolved]
  - Circumstance or information capable of leading to medication error [Unknown]
  - Emphysema [Unknown]
  - Contusion [Unknown]
  - Chronic obstructive pulmonary disease [Recovered/Resolved]
  - Gastrointestinal sounds abnormal [Unknown]
  - Weight increased [Recovered/Resolved]
  - Arthralgia [Unknown]
  - Rheumatoid lung [Unknown]
  - Dyspepsia [Unknown]
  - Malaise [Unknown]
  - Fatigue [Unknown]
  - Respiratory disorder [Unknown]
  - Muscle spasms [Unknown]
  - Intentional product misuse [Not Recovered/Not Resolved]

NARRATIVE: CASE EVENT DATE: 20120601
